FAERS Safety Report 13856186 (Version 3)
Quarter: 2017Q3

REPORT INFORMATION
  Report Type: Spontaneous
  Country: PT (occurrence: DE)
  Receive Date: 20170810
  Receipt Date: 20170928
  Transmission Date: 20171127
  Serious: Yes (Other)
  Sender: FDA-Public Use
  Company Number: PT-SUNOVION-2017SUN003552

PATIENT

DRUGS (10)
  1. FRISIUM [Concomitant]
     Active Substance: CLOBAZAM
     Indication: INSOMNIA
  2. ZEBINIX [Interacting]
     Active Substance: ESLICARBAZEPINE ACETATE
     Dosage: 400 MG, UNK
     Route: 048
     Dates: start: 2017
  3. CARBAMAZEPINE. [Interacting]
     Active Substance: CARBAMAZEPINE
     Indication: PRODUCT USED FOR UNKNOWN INDICATION
     Dosage: 1800 MG, UNK
     Route: 065
     Dates: end: 201702
  4. FRISIUM [Concomitant]
     Active Substance: CLOBAZAM
     Indication: EPILEPSY
     Dosage: 10 MG, DAILY
     Route: 048
     Dates: start: 201705, end: 201707
  5. FRISIUM [Concomitant]
     Active Substance: CLOBAZAM
     Indication: RESTLESSNESS
  6. OSPOLOT [Concomitant]
     Active Substance: SULTHIAME
     Indication: PRODUCT USED FOR UNKNOWN INDICATION
     Dosage: 50 MG, QD
     Route: 048
  7. OSPOLOT [Concomitant]
     Active Substance: SULTHIAME
     Dosage: 50 MG, BID
     Route: 048
  8. ZEBINIX [Suspect]
     Active Substance: ESLICARBAZEPINE ACETATE
     Indication: EPILEPSY
     Dosage: 1200 MG, DAILY
     Route: 048
     Dates: start: 201702, end: 201707
  9. LEVETIRACETAM. [Suspect]
     Active Substance: LEVETIRACETAM
     Indication: PRODUCT USED FOR UNKNOWN INDICATION
     Dosage: 2000 MG, QD
     Route: 048
  10. LEVETIRACETAM. [Suspect]
     Active Substance: LEVETIRACETAM
     Dosage: 1000 MG, BID
     Route: 048

REACTIONS (5)
  - Agitation [Not Recovered/Not Resolved]
  - Drug dose titration not performed [Unknown]
  - Restlessness [Recovering/Resolving]
  - Drug interaction [Unknown]
  - Sleep disorder [Recovering/Resolving]

NARRATIVE: CASE EVENT DATE: 201702
